FAERS Safety Report 7487006 (Version 3)
Quarter: 2014Q1

REPORT INFORMATION
  Report Type: Spontaneous
  Country: US (occurrence: US)
  Receive Date: 20100719
  Receipt Date: 20140203
  Transmission Date: 20141002
  Serious: No
  Sender: FDA-Public Use
  Company Number: US-JNJFOC-20100703599

PATIENT
  Sex: Female

DRUGS (1)
  1. DURAGESIC [Suspect]
     Indication: BACK PAIN
     Dosage: 100 UG/HR/ 2 PATCHES EVERY 48 HOURS
     Route: 062

REACTIONS (4)
  - Pain [Recovered/Resolved]
  - Product quality issue [Unknown]
  - Product quality issue [Unknown]
  - Wrong technique in drug usage process [Unknown]
